FAERS Safety Report 24171579 (Version 1)
Quarter: 2024Q3

REPORT INFORMATION
  Report Type: Spontaneous
  Country: RU (occurrence: RU)
  Receive Date: 20240805
  Receipt Date: 20240805
  Transmission Date: 20241016
  Serious: Yes (Life-Threatening, Hospitalization)
  Sender: JOHNSON AND JOHNSON
  Company Number: RU-BAYER-2024A111794

PATIENT
  Age: 75 Year
  Sex: Male
  Weight: 90 kg

DRUGS (7)
  1. XARELTO [Suspect]
     Active Substance: RIVAROXABAN
     Indication: Jugular vein thrombosis
     Dosage: 15 MG, QOD
     Route: 048
     Dates: start: 20240702, end: 20240709
  2. OMEPRAZOLE [Concomitant]
     Active Substance: OMEPRAZOLE
     Indication: Gastritis erosive
     Dosage: UNK
     Route: 048
     Dates: start: 20240619
  3. ATORVASTATIN [Concomitant]
     Active Substance: ATORVASTATIN
     Indication: Ischaemic stroke
     Dosage: UNK
     Route: 048
     Dates: start: 20240619, end: 20240628
  4. TORSEMIDE [Concomitant]
     Active Substance: TORSEMIDE
     Indication: Hypertension
     Dosage: UNK
     Route: 048
     Dates: start: 20240619
  5. METOPROLOL [Concomitant]
     Active Substance: METOPROLOL
     Indication: Hypertension
     Dosage: UNK
     Route: 048
     Dates: start: 20240619
  6. INOSINE\NIACINAMIDE\RIBOFLAVIN\SUCCINIC ACID [Concomitant]
     Active Substance: INOSINE\NIACINAMIDE\RIBOFLAVIN\SUCCINIC ACID
     Indication: Ischaemic stroke
     Dosage: UNK
     Route: 042
     Dates: start: 20240619, end: 20240702
  7. ENOXAPARIN SODIUM [Concomitant]
     Active Substance: ENOXAPARIN SODIUM
     Indication: Ischaemic stroke
     Dosage: UNK
     Route: 058
     Dates: start: 20240626, end: 20240702

REACTIONS (3)
  - Drug ineffective [Unknown]
  - Pulmonary embolism [Unknown]
  - Deep vein thrombosis [Unknown]

NARRATIVE: CASE EVENT DATE: 20240709
